FAERS Safety Report 4728408-5 (Version None)
Quarter: 2005Q3

REPORT INFORMATION
  Report Type: 
  Country: None (occurrence: None)
  Receive Date: 20050729
  Receipt Date: 20040825
  Transmission Date: 20060218
  Serious: No
  Sender: FDA-Public Use
  Company Number: US-GLAXOSMITHKLINE-A0523483A

PATIENT
  Age: 70 Year
  Sex: Male

DRUGS (2)
  1. ZANTAC [Suspect]
     Dosage: 2TSP TWICE PER DAY
     Route: 048
  2. NO CONCURRENT MEDICATION [Concomitant]

REACTIONS (8)
  - ANOREXIA [None]
  - CONFUSIONAL STATE [None]
  - DYSPHEMIA [None]
  - LIBIDO DECREASED [None]
  - PHARYNGOLARYNGEAL PAIN [None]
  - READING DISORDER [None]
  - SOMNOLENCE [None]
  - SPEECH DISORDER [None]
